FAERS Safety Report 5748661-9 (Version None)
Quarter: 2008Q2

REPORT INFORMATION
  Report Type: 
  Country: None (occurrence: None)
  Receive Date: 20080521
  Receipt Date: 20080505
  Transmission Date: 20081010
  Serious: Yes (Hospitalization, Other)
  Sender: FDA-Public Use
  Company Number: ADR1012008

PATIENT
  Age: 87 Year
  Sex: Male

DRUGS (4)
  1. ARROW - CITALOPRAM TABLETS [Suspect]
     Indication: DEPRESSION
     Dosage: 10 MG DAILY, ORAL
     Route: 048
     Dates: start: 20080404, end: 20080411
  2. ARROW - CITALOPRAM TABLETS [Suspect]
     Indication: DEPRESSION
     Dosage: 10 MG DAILY, ORAL
     Route: 048
     Dates: start: 20070906
  3. ZOPICLONE [Concomitant]
  4. LATANOPROST [Concomitant]

REACTIONS (4)
  - BALANCE DISORDER [None]
  - CEREBROVASCULAR ACCIDENT [None]
  - DIZZINESS [None]
  - TRANSIENT ISCHAEMIC ATTACK [None]
